FAERS Safety Report 5759238-3 (Version None)
Quarter: 2008Q2

REPORT INFORMATION
  Report Type: 
  Country: None (occurrence: None)
  Receive Date: 20080604
  Receipt Date: 20080530
  Transmission Date: 20081010
  Serious: Yes (Other)
  Sender: FDA-Public Use
  Company Number: US-GILEAD-2008-0016603

PATIENT
  Age: 25 Year
  Sex: Female

DRUGS (5)
  1. VIREAD [Suspect]
  2. DIDANOSINE [Concomitant]
  3. EFAVIRENZ [Concomitant]
  4. LAMIVUDINE [Concomitant]
  5. NEVIRAPINE [Concomitant]

REACTIONS (1)
  - ABORTION SPONTANEOUS [None]
